FAERS Safety Report 25878407 (Version 1)
Quarter: 2025Q4

REPORT INFORMATION
  Report Type: Spontaneous
  Country: JP (occurrence: JP)
  Receive Date: 20251003
  Receipt Date: 20251003
  Transmission Date: 20260117
  Serious: Yes (Hospitalization)
  Sender: PFIZER
  Company Number: JP-PFIZER INC-PV202500102821

PATIENT
  Age: 48 Year
  Sex: Male
  Weight: 58.3 kg

DRUGS (5)
  1. XALKORI [Suspect]
     Active Substance: CRIZOTINIB
     Indication: Lung neoplasm malignant
     Dosage: 250 MG, 2X/DAY
     Route: 048
     Dates: start: 20221208, end: 20221218
  2. BILASTINE [Suspect]
     Active Substance: BILASTINE
     Indication: Rhinitis
     Dosage: 20 MG, 1X/DAY
  3. AMOXICILLIN [Concomitant]
     Active Substance: AMOXICILLIN
     Indication: Sinusitis
     Dosage: 250 MG, 3X/DAY
  4. CARBOCYSTEINE [Concomitant]
     Active Substance: CARBOCYSTEINE
     Indication: Sinusitis
     Dosage: 250 MG, 3X/DAY
  5. BIOFERMIN R [ANTIBIOTICS-RESISTANT LACTIC ACID BACTERIAE] [Concomitant]
     Indication: Sinusitis
     Dosage: UNK, 3X/DAY

REACTIONS (1)
  - Drug eruption [Recovered/Resolved]

NARRATIVE: CASE EVENT DATE: 20221208
